APPROVED DRUG PRODUCT: GLEOLAN
Active Ingredient: AMINOLEVULINIC ACID HYDROCHLORIDE
Strength: 1.5GM/VIAL
Dosage Form/Route: FOR SOLUTION;ORAL
Application: N208630 | Product #001
Applicant: NX DEVELOPMENT CORP
Approved: Jun 6, 2017 | RLD: Yes | RS: Yes | Type: RX